FAERS Safety Report 7409696-3 (Version None)
Quarter: 2011Q2

REPORT INFORMATION
  Report Type: 
  Country: None (occurrence: None)
  Receive Date: 20110407
  Receipt Date: 20110407
  Transmission Date: 20111010
  Serious: Yes (Hospitalization, Other)
  Sender: FDA-Public Use
  Company Number: None

PATIENT
  Age: 93 Year
  Sex: Female
  Weight: 63.5036 kg

DRUGS (2)
  1. PRADAXA [Suspect]
     Indication: ATRIAL FIBRILLATION
     Dosage: DAILY PO
     Route: 048
     Dates: start: 20101210, end: 20110325
  2. PRADAXA [Suspect]
     Indication: THROMBOSIS
     Dosage: DAILY PO
     Route: 048
     Dates: start: 20101210, end: 20110325

REACTIONS (2)
  - SOMNAMBULISM [None]
  - CONFUSIONAL STATE [None]
